FAERS Safety Report 10076542 (Version 1)
Quarter: 2014Q2

REPORT INFORMATION
  Report Type: Spontaneous
  Country: US (occurrence: US)
  Receive Date: 20140414
  Receipt Date: 20140414
  Transmission Date: 20141212
  Serious: No
  Sender: FDA-Public Use
  Company Number: US-PFIZER INC-2014103364

PATIENT
  Age: 79 Year
  Sex: Female
  Weight: 68.48 kg

DRUGS (1)
  1. LYRICA [Suspect]
     Indication: NEUROPATHY PERIPHERAL
     Dosage: 75 MG, 3X/DAY
     Dates: start: 2004, end: 201404

REACTIONS (3)
  - Pain [Unknown]
  - Insomnia [Unknown]
  - Nasal congestion [Unknown]
